FAERS Safety Report 8152110-3 (Version None)
Quarter: 2012Q1

REPORT INFORMATION
  Report Type: 
  Country: None (occurrence: None)
  Receive Date: 20120221
  Receipt Date: 20120216
  Transmission Date: 20120608
  Serious: Yes (Hospitalization, Other)
  Sender: FDA-Public Use
  Company Number: US-PFIZER INC-2012042970

PATIENT
  Sex: Female

DRUGS (1)
  1. LIPITOR [Suspect]
     Dosage: UNK

REACTIONS (5)
  - HEADACHE [None]
  - VOMITING [None]
  - NEOPLASM MALIGNANT [None]
  - ANXIETY [None]
  - BLOOD CHOLESTEROL INCREASED [None]
